FAERS Safety Report 6470210-0 (Version None)
Quarter: 2009Q4

REPORT INFORMATION
  Report Type: 
  Country: None (occurrence: None)
  Receive Date: 20091203
  Receipt Date: 20071214
  Transmission Date: 20100525
  Serious: Yes (Hospitalization)
  Sender: FDA-Public Use
  Company Number: US-ELI_LILLY_AND_COMPANY-US200712003022

PATIENT
  Sex: Female
  Weight: 87.982 kg

DRUGS (12)
  1. BYETTA [Suspect]
     Indication: TYPE 2 DIABETES MELLITUS
     Dosage: 5 UG, 2/D
     Route: 058
     Dates: start: 20050101, end: 20050101
  2. BYETTA [Suspect]
     Dosage: 10 UG, 2/D
     Route: 058
     Dates: start: 20050101, end: 20070101
  3. BYETTA [Suspect]
     Dosage: 5 UG, 2/D
     Route: 058
     Dates: start: 20070301, end: 20070401
  4. BYETTA [Suspect]
     Dosage: 10 UG, 2/D
     Route: 058
     Dates: start: 20070401, end: 20070101
  5. BYETTA [Suspect]
     Dosage: 10 UG, DAILY (1/D)
     Route: 058
     Dates: start: 20070101
  6. GLUCOPHAGE [Concomitant]
     Indication: TYPE 2 DIABETES MELLITUS
     Dosage: 1000 MG, 2/D
  7. NOVOLIN N [Concomitant]
     Indication: TYPE 2 DIABETES MELLITUS
     Dosage: 16 U, 2/D
     Dates: end: 20050101
  8. NOVOLIN N [Concomitant]
     Dosage: 5 U, 2/D
     Dates: start: 20050101
  9. NOVOLIN R [Concomitant]
     Indication: TYPE 2 DIABETES MELLITUS
     Dosage: 16 U, 2/D
     Dates: end: 20050101
  10. NOVOLIN R [Concomitant]
     Dosage: 5 U, 2/D
     Dates: start: 20050101
  11. SYNTHROID [Concomitant]
     Indication: HYPOTHYROIDISM
     Dosage: 1.25 MG, DAILY (1/D)
  12. ANTIBIOTICS [Concomitant]
     Indication: SEPSIS
     Dates: start: 20061201, end: 20061201

REACTIONS (6)
  - ABDOMINAL PAIN LOWER [None]
  - APPENDICITIS [None]
  - NAUSEA [None]
  - SEPSIS [None]
  - VOMITING [None]
  - WEIGHT DECREASED [None]
